FAERS Safety Report 20592058 (Version 3)
Quarter: 2022Q4

REPORT INFORMATION
  Report Type: Report from Study
  Country: US (occurrence: None)
  Receive Date: 20220314
  Receipt Date: 20221215
  Transmission Date: 20230112
  Serious: Yes (Other)
  Sender: FDA-Public Use
  Company Number: US-ROCHE-3048478

PATIENT
  Age: 79 Year
  Sex: Female
  Weight: 98.3 kg

DRUGS (15)
  1. ATEZOLIZUMAB [Suspect]
     Active Substance: ATEZOLIZUMAB
     Indication: Adenocarcinoma of colon
     Dosage: LAST ADMINISTERED DATE: 18/NOV/2019, 05/JAN/2021?840MG IV ON DAY 1
     Route: 041
     Dates: start: 20201202, end: 20201202
  2. ATEZOLIZUMAB [Suspect]
     Active Substance: ATEZOLIZUMAB
     Route: 041
     Dates: start: 20210120, end: 20210120
  3. ATEZOLIZUMAB [Suspect]
     Active Substance: ATEZOLIZUMAB
     Route: 041
     Dates: start: 20200916
  4. ATEZOLIZUMAB [Suspect]
     Active Substance: ATEZOLIZUMAB
     Dosage: LAST ADMINISTERED DATE ON 02/DEC/2020
     Route: 041
     Dates: start: 20201216, end: 20201216
  5. FLUOROURACIL [Suspect]
     Active Substance: FLUOROURACIL
     Indication: Adenocarcinoma of colon
     Dosage: LAST ADMINISTERED DATE: 18/NOV/2019, 05/JAN/2021?400MG/M2 IV (BOLUS) ON DAY 1 FOLLOWED BY 2400MG/M2
     Route: 040
     Dates: start: 20201202, end: 20201204
  6. FLUOROURACIL [Suspect]
     Active Substance: FLUOROURACIL
     Dosage: LAST ADMINISTERED DATE: 05/JAN/2021
     Route: 040
     Dates: start: 20210120, end: 20210122
  7. FLUOROURACIL [Suspect]
     Active Substance: FLUOROURACIL
     Route: 040
     Dates: start: 20200916
  8. FLUOROURACIL [Suspect]
     Active Substance: FLUOROURACIL
     Dosage: LAST ADMINISTERED DATE:04/DEC/2020
     Route: 040
     Dates: start: 20201216, end: 20201218
  9. LEUCOVORIN CALCIUM [Suspect]
     Active Substance: LEUCOVORIN CALCIUM
     Indication: Adenocarcinoma of colon
     Dosage: LAST ADMINISTERED DATE: 18/NOV/2019, 05/JAN/2021?400MG/M2 IV OVER 2 HOURS ON DAY 1
     Route: 042
     Dates: start: 20201202, end: 20201202
  10. LEUCOVORIN CALCIUM [Suspect]
     Active Substance: LEUCOVORIN CALCIUM
     Route: 042
     Dates: start: 20210120, end: 20210120
  11. LEUCOVORIN CALCIUM [Suspect]
     Active Substance: LEUCOVORIN CALCIUM
     Route: 042
     Dates: start: 20200916
  12. LEUCOVORIN CALCIUM [Suspect]
     Active Substance: LEUCOVORIN CALCIUM
     Dosage: LAST ADMINISTERED DATE ON 02/DEC/2020
     Route: 042
     Dates: start: 20201216, end: 20201216
  13. OXALIPLATIN [Suspect]
     Active Substance: OXALIPLATIN
     Indication: Adenocarcinoma of colon
     Dosage: LAST ADMINISTERED DATE: 18/NOV/2019, 05/JAN/2021?85MG/M2 IV OVER 2 HOURS ON DAY 1
     Route: 042
     Dates: start: 20201202, end: 20201202
  14. OXALIPLATIN [Suspect]
     Active Substance: OXALIPLATIN
     Route: 042
     Dates: start: 20200916
  15. OXALIPLATIN [Suspect]
     Active Substance: OXALIPLATIN
     Dosage: LAST ADMINISTERED DATE ON 02/DEC/2020
     Route: 042
     Dates: start: 20201216, end: 20201216

REACTIONS (1)
  - Hypokalaemia [Recovered/Resolved with Sequelae]

NARRATIVE: CASE EVENT DATE: 20201201
